FAERS Safety Report 10191660 (Version 1)
Quarter: 2014Q2

REPORT INFORMATION
  Report Type: Spontaneous
  Country: FR (occurrence: FR)
  Receive Date: 20140523
  Receipt Date: 20140523
  Transmission Date: 20141212
  Serious: Yes (Hospitalization)
  Sender: FDA-Public Use
  Company Number: FR-PFIZER INC-2014135485

PATIENT
  Age: 13 Year
  Sex: Female

DRUGS (6)
  1. TAZOCILLINE [Suspect]
     Dosage: 4 G, 3X/DAY
     Dates: start: 20140319, end: 20140407
  2. AMIKACIN [Concomitant]
     Dosage: UNK
     Dates: start: 20140319, end: 20140324
  3. TARGOCID [Concomitant]
     Dosage: UNK
     Dates: start: 20140319, end: 20140319
  4. VANCOMYCIN [Concomitant]
     Dosage: UNK
     Dates: start: 20140320, end: 20140320
  5. POLARAMINE [Concomitant]
     Indication: ANAPHYLACTIC REACTION
  6. HEMISUCCINATE HYDROCORTISONE [Concomitant]
     Indication: ANAPHYLACTIC REACTION

REACTIONS (3)
  - Aplasia [Unknown]
  - Bone pain [Unknown]
  - Rash [Unknown]
